FAERS Safety Report 23126867 (Version 3)
Quarter: 2024Q1

REPORT INFORMATION
  Report Type: Spontaneous
  Country: BR (occurrence: BR)
  Receive Date: 20231030
  Receipt Date: 20240111
  Transmission Date: 20240409
  Serious: Yes (Other)
  Sender: FDA-Public Use
  Company Number: BR-002147023-NVSC2023BR196708

PATIENT
  Age: 57 Year
  Sex: Female

DRUGS (8)
  1. DIPYRONE [Suspect]
     Active Substance: DIPYRONE
     Indication: Headache
     Dosage: UNK
     Route: 065
  2. FULVESTRANT [Suspect]
     Active Substance: FULVESTRANT
     Indication: Product used for unknown indication
     Dosage: UNK
     Route: 065
  3. KISQALI [Suspect]
     Active Substance: RIBOCICLIB
     Indication: Breast cancer female
     Dosage: UNK
     Route: 065
  4. KISQALI [Suspect]
     Active Substance: RIBOCICLIB
     Dosage: UNK
     Route: 065
  5. KISQALI [Suspect]
     Active Substance: RIBOCICLIB
     Dosage: UNK
     Route: 065
  6. TRAMADOL [Suspect]
     Active Substance: TRAMADOL\TRAMADOL HYDROCHLORIDE
     Indication: Headache
     Dosage: UNK
     Route: 065
  7. ZOMETA [Suspect]
     Active Substance: ZOLEDRONIC ACID
     Indication: Product used for unknown indication
     Dosage: UNK
     Route: 065
  8. ZOMETA [Suspect]
     Active Substance: ZOLEDRONIC ACID
     Dosage: UNK
     Route: 065

REACTIONS (22)
  - Metastases to bone [Unknown]
  - Metastases to central nervous system [Unknown]
  - Metastases to spine [Unknown]
  - Tooth impacted [Unknown]
  - Feeling abnormal [Unknown]
  - Arthralgia [Unknown]
  - Neck pain [Recovered/Resolved]
  - Cough [Unknown]
  - Anaemia [Unknown]
  - Dyspnoea [Unknown]
  - Headache [Unknown]
  - Nausea [Not Recovered/Not Resolved]
  - Fatigue [Unknown]
  - Platelet count decreased [Recovered/Resolved]
  - Platelet count decreased [Unknown]
  - Visual impairment [Unknown]
  - Neck mass [Unknown]
  - Somnolence [Unknown]
  - Red blood cell count decreased [Unknown]
  - Malaise [Unknown]
  - Decreased immune responsiveness [Not Recovered/Not Resolved]
  - Pain [Unknown]

NARRATIVE: CASE EVENT DATE: 20230801
